FAERS Safety Report 7431074-1 (Version None)
Quarter: 2011Q2

REPORT INFORMATION
  Report Type: 
  Country: None (occurrence: None)
  Receive Date: 20110421
  Receipt Date: 20110411
  Transmission Date: 20111010
  Serious: Yes (Death, Hospitalization, Other)
  Sender: FDA-Public Use
  Company Number: US-ELI_LILLY_AND_COMPANY-US201008002935

PATIENT
  Sex: Male

DRUGS (1)
  1. FORTEO [Suspect]
     Dosage: 20 UG, DAILY (1/D)
     Route: 058
     Dates: start: 20090401

REACTIONS (6)
  - RENAL FAILURE [None]
  - STAPHYLOCOCCAL INFECTION [None]
  - ASTHENIA [None]
  - CARDIAC DISORDER [None]
  - PNEUMONIA [None]
  - DEATH [None]
